FAERS Safety Report 8103218-X (Version None)
Quarter: 2012Q1

REPORT INFORMATION
  Report Type: 
  Country: None (occurrence: None)
  Receive Date: 20120127
  Receipt Date: 20120116
  Transmission Date: 20120608
  Serious: Yes (Death)
  Sender: FDA-Public Use
  Company Number: ALK_02108_2011

PATIENT
  Sex: Male
  Weight: 64.4108 kg

DRUGS (7)
  1. VIVITROL [Suspect]
  2. MIRAPEX [Concomitant]
  3. SEROQUEL [Concomitant]
  4. VIVITROL [Suspect]
     Indication: ALCOHOLISM
     Dosage: 380 MG 1X/4 WEEKS INTRAMUSCULAR
     Route: 030
     Dates: start: 20110415, end: 20110706
  5. TRAZODONE HCL [Concomitant]
  6. ATARAX [Concomitant]
  7. VESICARE [Concomitant]

REACTIONS (3)
  - INTENTIONAL SELF-INJURY [None]
  - HEAD INJURY [None]
  - COMPLETED SUICIDE [None]
